FAERS Safety Report 20986429 (Version 1)
Quarter: 2022Q2

REPORT INFORMATION
  Report Type: Spontaneous
  Country: US (occurrence: None)
  Receive Date: 20220617
  Receipt Date: 20220617
  Transmission Date: 20220721
  Serious: Yes (Other)
  Sender: FDA-Public Use
  Company Number: None

PATIENT
  Sex: Female

DRUGS (4)
  1. ENBREL [Suspect]
     Active Substance: ETANERCEPT
     Indication: Rheumatoid arthritis
     Dosage: 50 MG/ML??INJECT 1 PEN UNDER THE SKIN (SUBCUTANEOUS  INJECTION) ONCE A WEEK
     Route: 058
     Dates: start: 20201113
  2. KENALOG-40 INJ 40MG/ML [Concomitant]
  3. METHYLPRED TAB 4MG [Concomitant]
  4. OMEPRAZOLE [Concomitant]
     Active Substance: OMEPRAZOLE

REACTIONS (2)
  - Therapy interrupted [None]
  - Therapy non-responder [None]
